FAERS Safety Report 4996336-6 (Version None)
Quarter: 2006Q2

REPORT INFORMATION
  Report Type: 
  Country: None (occurrence: None)
  Receive Date: 20060505
  Receipt Date: 20060424
  Transmission Date: 20061013
  Serious: Yes (Hospitalization)
  Sender: FDA-Public Use
  Company Number: 2006054537

PATIENT
  Age: 16 Year
  Sex: Male

DRUGS (3)
  1. PSEUDOEPHEDRINE HCL [Suspect]
     Indication: UPPER RESPIRATORY TRACT INFECTION
     Dosage: THREE DOSES-TOTAL DOSE OF 180 MG, ORAL
     Route: 048
  2. CEFAZOLIN [Suspect]
     Indication: UPPER RESPIRATORY TRACT INFECTION
     Dosage: 2 G/DAY, ORAL
     Route: 048
  3. ACETAMINOPHEN [Concomitant]
     Indication: UPPER RESPIRATORY TRACT INFECTION
     Dosage: 1500 MG/DAY, ORAL
     Route: 048

REACTIONS (10)
  - ARTERIOSPASM CORONARY [None]
  - BETA HAEMOLYTIC STREPTOCOCCAL INFECTION [None]
  - CATHETER RELATED COMPLICATION [None]
  - EJECTION FRACTION DECREASED [None]
  - ELECTROCARDIOGRAM ST SEGMENT ELEVATION [None]
  - MYOCARDIAL INFARCTION [None]
  - PHARYNGITIS BACTERIAL [None]
  - SINUSITIS BACTERIAL [None]
  - TONSILLITIS BACTERIAL [None]
  - VENTRICULAR HYPOKINESIA [None]
